FAERS Safety Report 10535135 (Version 1)
Quarter: 2014Q4

REPORT INFORMATION
  Report Type: Spontaneous
  Country: BR (occurrence: BR)
  Receive Date: 20141022
  Receipt Date: 20141022
  Transmission Date: 20150529
  Serious: Yes (Other)
  Sender: FDA-Public Use
  Company Number: BR-PFIZER INC-2014287602

PATIENT
  Age: 52 Year
  Sex: Female
  Weight: 58.5 kg

DRUGS (6)
  1. FRONTAL [Suspect]
     Active Substance: ALPRAZOLAM
     Indication: STRESS
     Dosage: 1 MG, DAILY
     Route: 048
     Dates: start: 1998, end: 2012
  2. DORFLEX [Concomitant]
     Active Substance: CAFFEINE\DIPYRONE\ORPHENADRINE
     Indication: PAIN IN EXTREMITY
  3. AAS [Concomitant]
     Active Substance: ASPIRIN
     Indication: CARDIOVASCULAR DISORDER
     Dosage: 2 TABLETS (UNSPECIFIED DOSE), DAILY
     Dates: start: 1994
  4. CAPTOPRIL. [Concomitant]
     Active Substance: CAPTOPRIL
     Indication: BLOOD PRESSURE INCREASED
     Dosage: UNK
     Dates: start: 1994, end: 2011
  5. DORFLEX [Concomitant]
     Active Substance: CAFFEINE\DIPYRONE\ORPHENADRINE
     Indication: HEADACHE
     Dosage: UNK
     Dates: start: 1994
  6. SIMETHICONE [Concomitant]
     Active Substance: DIMETHICONE\SILICON DIOXIDE\SIMETHICONE
     Indication: FLATULENCE
     Dosage: 2 TABLETS (UNSPECIIFED DOSE), DAILY
     Dates: start: 2009

REACTIONS (3)
  - Upper limb fracture [Not Recovered/Not Resolved]
  - Gastrointestinal infection [Unknown]
  - Erythema [Unknown]

NARRATIVE: CASE EVENT DATE: 2006
